FAERS Safety Report 24418293 (Version 4)
Quarter: 2025Q1

REPORT INFORMATION
  Report Type: Spontaneous
  Country: US (occurrence: US)
  Receive Date: 20241009
  Receipt Date: 20250313
  Transmission Date: 20250409
  Serious: Yes (Death, Other)
  Sender: SANOFI AVENTIS
  Company Number: US-SA-2024SA287662

PATIENT
  Age: 70 Year
  Sex: Male

DRUGS (16)
  1. DUPIXENT [Suspect]
     Active Substance: DUPILUMAB
     Indication: Asthma
     Dosage: 300 MG, QOW
     Route: 058
  2. KRAZATI [Concomitant]
     Active Substance: ADAGRASIB
  3. JARDIANCE [Concomitant]
     Active Substance: EMPAGLIFLOZIN
  4. ELIQUIS [Concomitant]
     Active Substance: APIXABAN
  5. FLUTICASONE [Concomitant]
     Active Substance: FLUTICASONE
  6. SPIRIVA [Concomitant]
     Active Substance: TIOTROPIUM BROMIDE MONOHYDRATE
  7. AZELASTINE HYDROCHLORIDE [Concomitant]
     Active Substance: AZELASTINE HYDROCHLORIDE
  8. LISINOPRIL AND HYDROCHLOROTHIAZIDE [Concomitant]
     Active Substance: HYDROCHLOROTHIAZIDE\LISINOPRIL
  9. DILTIAZEM HYDROCHLORIDE [Concomitant]
     Active Substance: DILTIAZEM HYDROCHLORIDE
  10. OMEPRAZOLE [Concomitant]
     Active Substance: OMEPRAZOLE
  11. SINGULAIR [Concomitant]
     Active Substance: MONTELUKAST SODIUM
  12. ALLEGRA ALLERGY [Concomitant]
     Active Substance: FEXOFENADINE HYDROCHLORIDE
  13. ATORVASTATIN [Concomitant]
     Active Substance: ATORVASTATIN
  14. ALBUTEROL SULFATE [Concomitant]
     Active Substance: ALBUTEROL SULFATE
  15. IPRATROPIUM [Concomitant]
     Active Substance: IPRATROPIUM
  16. SPIRIVA [Concomitant]
     Active Substance: TIOTROPIUM BROMIDE MONOHYDRATE

REACTIONS (6)
  - Death [Fatal]
  - Loss of personal independence in daily activities [Unknown]
  - Dyspnoea [Unknown]
  - Fatigue [Unknown]
  - Dry eye [Unknown]
  - Arthralgia [Unknown]

NARRATIVE: CASE EVENT DATE: 20250128
